FAERS Safety Report 11166867 (Version 3)
Quarter: 2016Q3

REPORT INFORMATION
  Report Type: Spontaneous
  Country: US (occurrence: US)
  Receive Date: 20150605
  Receipt Date: 20160825
  Transmission Date: 20161109
  Serious: Yes (Hospitalization, Other)
  Sender: FDA-Public Use
  Company Number: US-ASTRAZENECA-2013SE42747

PATIENT
  Age: 50 Year
  Sex: Male
  Weight: 83.5 kg

DRUGS (7)
  1. BYDUREON [Suspect]
     Active Substance: EXENATIDE
     Indication: TYPE 2 DIABETES MELLITUS
     Dosage: 2 MG 4 COUNT; ONCE A WEEK
     Route: 058
  2. BYDUREON [Suspect]
     Active Substance: EXENATIDE
     Indication: TYPE 2 DIABETES MELLITUS
     Route: 058
     Dates: start: 20130612
  3. BYDUREON [Suspect]
     Active Substance: EXENATIDE
     Indication: TYPE 2 DIABETES MELLITUS
     Route: 058
     Dates: start: 20130819, end: 20160819
  4. METFORMIN HCL [Suspect]
     Active Substance: METFORMIN HYDROCHLORIDE
     Dosage: 1000 MG, TWO TIMES A DAY;
     Route: 048
  5. BYDUREON [Suspect]
     Active Substance: EXENATIDE
     Indication: TYPE 2 DIABETES MELLITUS
     Route: 058
     Dates: start: 20141028
  6. UNKNOWN [Concomitant]
     Active Substance: UNSPECIFIED INGREDIENT
  7. INSULIN [Concomitant]
     Active Substance: INSULIN NOS
     Dosage: INT

REACTIONS (19)
  - Confusional state [Unknown]
  - Injection site haemorrhage [Recovered/Resolved]
  - Headache [Unknown]
  - Application site pain [Unknown]
  - Injection site pruritus [Not Recovered/Not Resolved]
  - Fatigue [Unknown]
  - Seizure [Unknown]
  - Post-traumatic stress disorder [Unknown]
  - Stress [Unknown]
  - Injection site erythema [Not Recovered/Not Resolved]
  - Weight decreased [Not Recovered/Not Resolved]
  - Product quality issue [Unknown]
  - Chronic obstructive pulmonary disease [Recovering/Resolving]
  - Irritability [Unknown]
  - Decreased appetite [Not Recovered/Not Resolved]
  - Myocardial infarction [Unknown]
  - Pancreatitis [Recovered/Resolved]
  - Blood glucose increased [Recovering/Resolving]
  - Injection site swelling [Recovered/Resolved]

NARRATIVE: CASE EVENT DATE: 2013
